FAERS Safety Report 9377016 (Version 1)
Quarter: 2013Q3

REPORT INFORMATION
  Report Type: Spontaneous
  Country: US (occurrence: US)
  Receive Date: 20130701
  Receipt Date: 20130701
  Transmission Date: 20140515
  Serious: No
  Sender: FDA-Public Use
  Company Number: US-BAYER-2013-079915

PATIENT
  Age: 86 Year
  Sex: Male
  Weight: 83.9 kg

DRUGS (2)
  1. ALEVE CAPLET [Suspect]
     Indication: ARTHRITIS
     Dosage: 1 DF, PRN
     Route: 048
     Dates: start: 2011
  2. MULTIVITAMINS [Concomitant]

REACTIONS (3)
  - Rash pruritic [Recovered/Resolved]
  - Incorrect drug administration duration [None]
  - Drug ineffective [None]
